FAERS Safety Report 11835512 (Version 1)
Quarter: 2015Q4

REPORT INFORMATION
  Report Type: Spontaneous
  Country: US (occurrence: None)
  Receive Date: 20151214
  Receipt Date: 20151214
  Transmission Date: 20160305
  Serious: Yes (Other)
  Sender: FDA-Public Use
  Company Number: None

PATIENT
  Age: 37 Year
  Sex: Female
  Weight: 81.65 kg

DRUGS (13)
  1. PROAIR HFA [Concomitant]
     Active Substance: ALBUTEROL SULFATE
  2. MAGNESIUM [Concomitant]
     Active Substance: MAGNESIUM
  3. CINNAMON. [Concomitant]
     Active Substance: CINNAMON
  4. L-LYSINE [Concomitant]
     Active Substance: LYSINE
  5. MSM [Concomitant]
     Active Substance: DIMETHYL SULFONE
  6. MONTELUKAST SODIUM TABLETS 10 MG [Suspect]
     Active Substance: MONTELUKAST SODIUM
     Indication: ASTHMA
     Route: 048
     Dates: start: 20151119, end: 20151201
  7. POTASSIUM [Concomitant]
     Active Substance: POTASSIUM
  8. GLUCOSAMINE/CHONDROITIN [Concomitant]
  9. KELP [Concomitant]
     Active Substance: KELP
  10. VIT K [Concomitant]
  11. SYNTHROID [Concomitant]
     Active Substance: LEVOTHYROXINE SODIUM
  12. SIMVASTATIN. [Concomitant]
     Active Substance: SIMVASTATIN
  13. CRANBERRY EXTRACT [Concomitant]
     Active Substance: CRANBERRY JUICE

REACTIONS (5)
  - Pain [None]
  - Drug ineffective [None]
  - Headache [None]
  - Asthenia [None]
  - Product substitution issue [None]

NARRATIVE: CASE EVENT DATE: 20151202
